FAERS Safety Report 7396226-8 (Version None)
Quarter: 2011Q1

REPORT INFORMATION
  Report Type: 
  Country: None (occurrence: None)
  Receive Date: 20110301
  Receipt Date: 20100727
  Transmission Date: 20110831
  Serious: Yes (Other)
  Sender: FDA-Public Use
  Company Number: 2211100-US-JNJFOC-20100802114

PATIENT

DRUGS (2)
  1. CHILDREN'S MOTRIN [Suspect]
     Indication: FALL
     Dosage: 200 MG, 2 IN 1 TOTAL, ORAL
     Route: 048
     Dates: start: 20100314
  2. CHILDREN'S MOTRIN [Suspect]
     Indication: FALL
     Dosage: 200 MG, 2 IN 1 TOTAL, ORAL
     Route: 048
     Dates: start: 20100313

REACTIONS (1)
  - HYPERSENSITIVITY [None]
